FAERS Safety Report 10021806 (Version 2)
Quarter: 2014Q1

REPORT INFORMATION
  Report Type: Spontaneous
  Country: US (occurrence: US)
  Receive Date: 20140319
  Receipt Date: 20140319
  Transmission Date: 20141002
  Serious: Yes (Hospitalization)
  Sender: FDA-Public Use
  Company Number: PHEH2014US004985

PATIENT
  Sex: Male

DRUGS (5)
  1. TASIGNA [Suspect]
     Dosage: 400 MG, BID
  2. BISOPROLOL [Concomitant]
     Indication: HYPERTENSION
     Dosage: 10 MG, QD
     Dates: start: 20140216
  3. ALLOPURINOL [Concomitant]
     Indication: GOUT
     Dosage: 100 MG, QD
     Dates: start: 20140216
  4. PANTOPRAZOL [Concomitant]
     Indication: GASTROOESOPHAGEAL REFLUX DISEASE
     Dosage: 20 MG, QD
     Dates: start: 20140216
  5. PHENERGAN [Concomitant]
     Indication: NAUSEA
     Dosage: 25 MG, BID
     Dates: start: 20140216

REACTIONS (1)
  - Osteoarthritis [Unknown]
